FAERS Safety Report 7335553-7 (Version None)
Quarter: 2011Q1

REPORT INFORMATION
  Report Type: 
  Country: None (occurrence: None)
  Receive Date: 20110307
  Receipt Date: 20110302
  Transmission Date: 20110831
  Serious: Yes (Other)
  Sender: FDA-Public Use
  Company Number: FR-PFIZER INC-2011045395

PATIENT
  Age: 53 Year
  Sex: Female

DRUGS (6)
  1. RIVOTRIL [Concomitant]
     Dosage: UNK
  2. TAHOR [Suspect]
     Indication: CEREBROVASCULAR ACCIDENT
  3. TAHOR [Suspect]
     Indication: MALAISE
     Dosage: 40 MG
  4. KARDEGIC [Concomitant]
     Dosage: UNK
  5. TANGANIL [Concomitant]
     Dosage: UNK
  6. NEXIUM [Concomitant]
     Dosage: UNK

REACTIONS (2)
  - ARTHRALGIA [None]
  - VISUAL FIELD DEFECT [None]
